FAERS Safety Report 23271091 (Version 1)
Quarter: 2023Q4

REPORT INFORMATION
  Report Type: Spontaneous
  Country: CA (occurrence: CA)
  Receive Date: 20231207
  Receipt Date: 20231207
  Transmission Date: 20240110
  Serious: Yes (Hospitalization, Other)
  Sender: FDA-Public Use
  Company Number: CA-002147023-PHHY2017CA163083

PATIENT
  Age: 67 Year
  Sex: Female

DRUGS (20)
  1. ATARAX [Suspect]
     Active Substance: HYDROXYZINE HYDROCHLORIDE
     Indication: Product used for unknown indication
     Dosage: UNK
     Route: 065
  2. DIAZOXIDE [Suspect]
     Active Substance: DIAZOXIDE
     Indication: Product used for unknown indication
     Dosage: UNK (50 MG/ ML (0.5ML IN THE MORNING AND 1ML IN THE AFTERNOON))
     Route: 065
  3. METFORMIN [Suspect]
     Active Substance: METFORMIN HYDROCHLORIDE
     Indication: Hyperglycaemia
     Dosage: 500 MG, BID (MORNING AND EVENING), START DATE: 2019
     Route: 065
  4. OCTREOTIDE [Suspect]
     Active Substance: OCTREOTIDE
     Indication: Neuroendocrine tumour
     Dosage: 100 UG, QHS, START DATE: JUL-2017
     Route: 058
  5. OCTREOTIDE [Suspect]
     Active Substance: OCTREOTIDE
     Dosage: 3 DF, QD, START DATE: 2017
     Route: 058
  6. OCTREOTIDE [Suspect]
     Active Substance: OCTREOTIDE
     Indication: Carcinoid tumour
     Dosage: 50 UG, BID (MORNING AND AFTERNOON), START DATE: JUL-2017
     Route: 058
  7. SANDOSTATIN [Suspect]
     Active Substance: OCTREOTIDE ACETATE
     Indication: Neuroendocrine tumour
     Dosage: 100 UG, BID, START DATE: JUL-2017
     Route: 058
  8. SANDOSTATIN [Suspect]
     Active Substance: OCTREOTIDE ACETATE
     Indication: Carcinoid tumour
  9. SANDOSTATIN LAR DEPOT [Suspect]
     Active Substance: OCTREOTIDE ACETATE
     Dosage: UNK
     Route: 065
  10. SANDOSTATIN LAR DEPOT [Suspect]
     Active Substance: OCTREOTIDE ACETATE
     Dosage: 30 MG, Q4W, 31-JAN-2021
     Route: 030
  11. SANDOSTATIN LAR DEPOT [Suspect]
     Active Substance: OCTREOTIDE ACETATE
     Indication: Neuroendocrine tumour
     Dosage: 40 MG, QMO (EVERY 4 WEEKS), 22-JUL-2020
     Route: 030
  12. SANDOSTATIN LAR DEPOT [Suspect]
     Active Substance: OCTREOTIDE ACETATE
     Dosage: 40 MG
     Route: 065
  13. SANDOSTATIN LAR DEPOT [Suspect]
     Active Substance: OCTREOTIDE ACETATE
     Dosage: 60 MG, QMO (EVERY 4 WEEKS)
     Route: 030
  14. SANDOSTATIN LAR DEPOT [Suspect]
     Active Substance: OCTREOTIDE ACETATE
     Indication: Insulinoma
     Dosage: 60 MG, QMO (EVERY 4 WEEKS), 21-AUG-2018
     Route: 030
  15. SANDOSTATIN LAR DEPOT [Suspect]
     Active Substance: OCTREOTIDE ACETATE
     Indication: Carcinoid tumour
     Dosage: 60 MG, QMO (EVERY 4 WEEKS), 04-OCT-2017
     Route: 030
     Dates: end: 20200623
  16. CETIRIZINE [Concomitant]
     Active Substance: CETIRIZINE HYDROCHLORIDE
     Indication: Pruritus
     Dosage: 20 MG, QD
     Route: 048
     Dates: start: 20200124
  17. HYDROXYZINE [Concomitant]
     Active Substance: HYDROXYZINE HYDROCHLORIDE
     Dosage: 10 MG, QD
     Route: 048
     Dates: start: 20200203
  18. HYDROXYZINE [Concomitant]
     Active Substance: HYDROXYZINE HYDROCHLORIDE
     Indication: Pruritus
     Dosage: 25 MG, PRN
     Route: 048
  19. LANSOPRAZOLE [Concomitant]
     Active Substance: LANSOPRAZOLE
     Indication: Product used for unknown indication
     Dosage: 30 MG, QD (30 MINS BEFORE BREAKFAST AS NEEDED)
     Route: 065
  20. Pramox hc [Concomitant]
     Indication: Pruritus
     Dosage: 1 %, PRN (1 TO 4 TIMES/DAY)
     Route: 061

REACTIONS (30)
  - Blood glucose abnormal [Unknown]
  - Blood glucose decreased [Unknown]
  - Blood pressure systolic increased [Unknown]
  - Blood pressure diastolic decreased [Unknown]
  - Body temperature decreased [Unknown]
  - Arthritis [Recovered/Resolved]
  - Balance disorder [Unknown]
  - Fall [Unknown]
  - Haematoma [Unknown]
  - Oedema peripheral [Unknown]
  - Pain [Unknown]
  - Vision blurred [Unknown]
  - Fatigue [Unknown]
  - Arthralgia [Unknown]
  - Vertigo [Not Recovered/Not Resolved]
  - Gait disturbance [Unknown]
  - Skin plaque [Unknown]
  - Wound [Unknown]
  - Needle issue [Unknown]
  - Erythema [Unknown]
  - Dizziness [Not Recovered/Not Resolved]
  - Abdominal pain upper [Recovered/Resolved]
  - Hyperglycaemia [Not Recovered/Not Resolved]
  - Thirst [Unknown]
  - Dry mouth [Unknown]
  - Dyspnoea [Unknown]
  - Alopecia [Unknown]
  - Blood glucose increased [Unknown]
  - Injection site pain [Unknown]
  - Injection site hypersensitivity [Unknown]

NARRATIVE: CASE EVENT DATE: 20171001
